FAERS Safety Report 10442834 (Version 2)
Quarter: 2014Q4

REPORT INFORMATION
  Report Type: Other
  Country: IT (occurrence: IT)
  Receive Date: 20140909
  Receipt Date: 20141120
  Transmission Date: 20150528
  Serious: Yes (Life-Threatening)
  Sender: FDA-Public Use
  Company Number: IT-MYLAN-2014M1003315

PATIENT

DRUGS (2)
  1. RISPERIDONE. [Suspect]
     Active Substance: RISPERIDONE
     Indication: PRODUCT USED FOR UNKNOWN INDICATION
     Dosage: UNK
     Dates: start: 20131214, end: 20131214
  2. QUETIAPINE [Suspect]
     Active Substance: QUETIAPINE
     Indication: PRODUCT USED FOR UNKNOWN INDICATION
     Dosage: 6 G, TOTAL
     Route: 048
     Dates: start: 20131214, end: 20131214

REACTIONS (4)
  - Coma [Not Recovered/Not Resolved]
  - Overdose [Not Recovered/Not Resolved]
  - Drug abuse [Not Recovered/Not Resolved]
  - Stupor [Not Recovered/Not Resolved]

NARRATIVE: CASE EVENT DATE: 20131214
